FAERS Safety Report 7950948-6 (Version None)
Quarter: 2011Q4

REPORT INFORMATION
  Report Type: 
  Country: None (occurrence: None)
  Receive Date: 20111201
  Receipt Date: 20111122
  Transmission Date: 20120403
  Serious: No
  Sender: FDA-Public Use
  Company Number: US-BIOGENIDEC-2011BI044731

PATIENT
  Age: 49 Year
  Sex: Female

DRUGS (6)
  1. NAPROXEN [Concomitant]
     Indication: GAIT DISTURBANCE
     Route: 048
     Dates: start: 20050101
  2. TYSABRI [Suspect]
     Indication: MULTIPLE SCLEROSIS
     Route: 042
     Dates: start: 20111028
  3. NAPROXEN [Concomitant]
     Indication: MYALGIA
     Route: 048
     Dates: start: 20050101
  4. NAPROXEN [Concomitant]
     Indication: ARTHRALGIA
     Route: 048
     Dates: start: 20050101
  5. NAPROXEN [Concomitant]
     Indication: MOVEMENT DISORDER
     Route: 048
     Dates: start: 20050101
  6. NAPROXEN [Concomitant]
     Indication: MUSCULOSKELETAL STIFFNESS
     Route: 048
     Dates: start: 20050101

REACTIONS (5)
  - MYALGIA [None]
  - GAIT DISTURBANCE [None]
  - MUSCULOSKELETAL STIFFNESS [None]
  - ARTHRALGIA [None]
  - MOBILITY DECREASED [None]
